FAERS Safety Report 8581774-5 (Version None)
Quarter: 2012Q3

REPORT INFORMATION
  Report Type: 
  Country: None (occurrence: None)
  Receive Date: 20120809
  Receipt Date: 20120806
  Transmission Date: 20120928
  Serious: Yes (Hospitalization, Other)
  Sender: FDA-Public Use
  Company Number: PHHY2012BR046992

PATIENT
  Sex: Female

DRUGS (7)
  1. BEROTEC [Concomitant]
     Dosage: 6 DROPS TWICE DAILY
  2. AMLODIPINE [Concomitant]
     Indication: HYPERTENSION
     Dosage: 5 MG, QD
     Route: 048
  3. BEROTEC [Concomitant]
     Indication: DYSPNOEA
     Dosage: 3  TIMES A DAY
  4. BEROTEC / ATROVENT [Concomitant]
     Indication: DYSPNOEA
     Dosage: 6 DROPS OF BEROTEC AND 30 DROPS OF ATROVENT
  5. DIGOXIN [Concomitant]
     Indication: ARRHYTHMIA
     Dosage: 25 MG, QD
     Route: 048
  6. ONBREZ [Suspect]
     Indication: EMPHYSEMA
     Dosage: 150 UG, BID
     Dates: start: 20120201
  7. ENALAPRIL MALEATE [Concomitant]
     Indication: BLOOD PRESSURE
     Dosage: 10 MG, BID
     Route: 048

REACTIONS (2)
  - EMPHYSEMA [None]
  - RESPIRATORY DISORDER [None]
